FAERS Safety Report 19707879 (Version 4)
Quarter: 2021Q3

REPORT INFORMATION
  Report Type: Report from Study
  Country: US (occurrence: US)
  Receive Date: 20210817
  Receipt Date: 20210925
  Transmission Date: 20211014
  Serious: Yes (Hospitalization, Other)
  Sender: FDA-Public Use
  Company Number: NVSC2021US181818

PATIENT
  Age: 75 Year
  Sex: Male

DRUGS (2)
  1. ENTRESTO [Suspect]
     Active Substance: SACUBITRIL\VALSARTAN
     Indication: PRODUCT USED FOR UNKNOWN INDICATION
     Dosage: 50 MG, BID (24/26 MG)
     Route: 048
     Dates: start: 20210620
  2. CARVEDILOL. [Suspect]
     Active Substance: CARVEDILOL
     Indication: PRODUCT USED FOR UNKNOWN INDICATION
     Dosage: UNK
     Route: 065

REACTIONS (16)
  - Arthralgia [Unknown]
  - Neck pain [Unknown]
  - Feeling abnormal [Unknown]
  - Dizziness [Unknown]
  - Pain [Unknown]
  - Hypotension [Unknown]
  - Discontinued product administered [Unknown]
  - Influenza [Recovering/Resolving]
  - Nausea [Unknown]
  - Urinary retention [Recovering/Resolving]
  - Palpitations [Unknown]
  - Abdominal distension [Unknown]
  - Sluggishness [Unknown]
  - Angina pectoris [Recovering/Resolving]
  - Eating disorder [Unknown]
  - Urine output increased [Unknown]

NARRATIVE: CASE EVENT DATE: 20210820
